FAERS Safety Report 23891929 (Version 1)
Quarter: 2024Q2

REPORT INFORMATION
  Report Type: Other
  Country: US (occurrence: None)
  Receive Date: 20240524
  Receipt Date: 20240524
  Transmission Date: 20240716
  Serious: No
  Sender: FDA-Public Use
  Company Number: US-ROCHE-3457841

PATIENT
  Age: 36 Year
  Sex: Male
  Weight: 99 kg

DRUGS (15)
  1. TOCILIZUMAB [Suspect]
     Active Substance: TOCILIZUMAB
     Indication: COVID-19
     Route: 065
  2. CEFTRIAXONE [Suspect]
     Active Substance: CEFTRIAXONE\CEFTRIAXONE SODIUM
     Indication: COVID-19
     Route: 065
  3. METHYLPREDNISOLONE [Concomitant]
     Active Substance: METHYLPREDNISOLONE
  4. REMDESIVIR [Concomitant]
     Active Substance: REMDESIVIR
  5. AZITHROMYCIN [Concomitant]
     Active Substance: AZITHROMYCIN
  6. HEPARIN [Concomitant]
     Active Substance: HEPARIN SODIUM
  7. BIVALIRUDIN [Concomitant]
     Active Substance: BIVALIRUDIN
  8. DEXMEDETOMIDINE [Concomitant]
     Active Substance: DEXMEDETOMIDINE
  9. DOPAMINE [Concomitant]
     Active Substance: DOPAMINE HYDROCHLORIDE
  10. EPINEPHRINE [Concomitant]
     Active Substance: EPINEPHRINE
  11. HYDROMORPHONE [Concomitant]
     Active Substance: HYDROMORPHONE
  12. PROPOFOL [Concomitant]
     Active Substance: PROPOFOL
  13. DEXMEDETOMIDINE [Concomitant]
     Active Substance: DEXMEDETOMIDINE
  14. KETAMINE [Concomitant]
     Active Substance: KETAMINE
  15. QUETIAPINE [Concomitant]
     Active Substance: QUETIAPINE

REACTIONS (2)
  - Off label use [Unknown]
  - No adverse event [Unknown]
